FAERS Safety Report 18189541 (Version 2)
Quarter: 2020Q4

REPORT INFORMATION
  Report Type: Spontaneous
  Country: US (occurrence: US)
  Receive Date: 20200825
  Receipt Date: 20201012
  Transmission Date: 20210113
  Serious: No
  Sender: FDA-Public Use
  Company Number: US-BIOGEN-2020BI00914918

PATIENT
  Sex: Female

DRUGS (2)
  1. TYSABRI [Suspect]
     Active Substance: NATALIZUMAB
     Indication: MULTIPLE SCLEROSIS
     Route: 065
     Dates: start: 20170727, end: 20181213
  2. TYSABRI [Interacting]
     Active Substance: NATALIZUMAB
     Route: 065
     Dates: start: 20190306

REACTIONS (2)
  - Gait disturbance [Unknown]
  - Treatment noncompliance [Unknown]
